FAERS Safety Report 10048146 (Version 2)
Quarter: 2014Q2

REPORT INFORMATION
  Report Type: Spontaneous
  Country: US (occurrence: US)
  Receive Date: 20140331
  Receipt Date: 20140404
  Transmission Date: 20141212
  Serious: Yes (Death, Other)
  Sender: FDA-Public Use
  Company Number: US-JNJFOC-20140318475

PATIENT
  Age: 57 Year
  Sex: Male

DRUGS (1)
  1. IMBRUVICA [Suspect]
     Indication: CHRONIC LYMPHOCYTIC LEUKAEMIA
     Route: 048
     Dates: start: 20140124, end: 20140220

REACTIONS (6)
  - Disease progression [Fatal]
  - Lactic acidosis [Unknown]
  - Pneumonia [Unknown]
  - Hypotension [Unknown]
  - Lymphocyte count increased [Recovered/Resolved]
  - Abdominal pain [Unknown]
